FAERS Safety Report 7410112-6 (Version None)
Quarter: 2011Q2

REPORT INFORMATION
  Report Type: 
  Country: None (occurrence: None)
  Receive Date: 20110412
  Receipt Date: 20110404
  Transmission Date: 20111010
  Serious: Yes (Hospitalization)
  Sender: FDA-Public Use
  Company Number: CA-ROCHE-766257

PATIENT
  Sex: Male
  Weight: 65 kg

DRUGS (15)
  1. VOLTAREN [Concomitant]
     Route: 048
     Dates: start: 20080324
  2. ELTROXIN [Concomitant]
     Indication: HYPOTHYROIDISM
     Route: 048
  3. METHOTREXATE [Concomitant]
  4. FLOMAX [Concomitant]
     Route: 048
  5. PRILOSEC [Concomitant]
     Indication: PROPHYLAXIS
     Route: 048
  6. TRAMADOL HCL [Concomitant]
  7. CALCIUM [Concomitant]
  8. TYLENOL NO 4 WITH CODEINE [Concomitant]
     Dosage: DRUG: TYLENOL NO. 4
  9. TOCILIZUMAB [Suspect]
     Indication: RHEUMATOID ARTHRITIS
     Dosage: FORM: INFUSION
     Route: 042
     Dates: start: 20101012, end: 20110208
  10. VESICARE [Concomitant]
     Route: 048
  11. TYLENOL W/ CODEINE NO. 3 [Concomitant]
     Dosage: DOSE: 1-2 TABLETS; AS NEEDED
     Route: 048
  12. PREDNISONE [Concomitant]
     Route: 048
     Dates: start: 20110101
  13. ARAVA [Concomitant]
     Route: 048
     Dates: start: 20070101
  14. LYRICA [Concomitant]
  15. NEXIUM [Concomitant]

REACTIONS (2)
  - SKIN ULCER [None]
  - RHEUMATOID VASCULITIS [None]
